FAERS Safety Report 23806278 (Version 1)
Quarter: 2024Q2

REPORT INFORMATION
  Report Type: Spontaneous
  Country: US (occurrence: US)
  Receive Date: 20240502
  Receipt Date: 20240502
  Transmission Date: 20240716
  Serious: Yes (Hospitalization, Other)
  Sender: FDA-Public Use
  Company Number: US-JNJFOC-20240481169

PATIENT

DRUGS (8)
  1. SPRAVATO [Suspect]
     Active Substance: ESKETAMINE
     Indication: Depression
     Dosage: FIRST INTRANASAL ESKETAMINE TREATMENT AT 8 WEEKS 3 DAYS GESTATIONAL AGE
     Route: 064
  2. SPRAVATO [Suspect]
     Active Substance: ESKETAMINE
     Dosage: SECOND INTRANASAL TREATMENT AT 9 WEEKS 1 DAY GESTATIONAL AGE
     Route: 064
  3. KETAMINE [Suspect]
     Active Substance: KETAMINE
     Indication: Depression
     Dosage: THE PATIENT RECEIVED IV KETAMINE AT 5 AND 8 WEEKS GESTATIONAL AGE, AT AN OUTSIDE FACILITY.
     Route: 042
  4. BUPROPION [Suspect]
     Active Substance: BUPROPION
     Indication: Depression
     Dosage: BUPROPION XL WAS TITRATED TO 450 MG DAILY
     Route: 065
  5. LITHIUM [Suspect]
     Active Substance: LITHIUM
     Indication: Depression
     Dosage: LITHIUM WAS TITRATED TO 600 MG IN THE MORNING AND 900 MG AT NIGHT WITH AN AVERAGE LITHIUM CONCENTRAT
     Route: 065
  6. LITHIUM [Suspect]
     Active Substance: LITHIUM
     Dosage: LITHIUM WAS TITRATED TO 600 MG IN THE MORNING AND 900 MG AT NIGHT WITH AN AVERAGE LITHIUM CONCENTRAT
     Route: 065
  7. FLUOXETINE [Suspect]
     Active Substance: FLUOXETINE HYDROCHLORIDE
     Indication: Depression
     Route: 065
  8. PRAZOSIN [Suspect]
     Active Substance: PRAZOSIN
     Indication: Depression
     Route: 065

REACTIONS (4)
  - Gross motor delay [Unknown]
  - Hypoglycaemia neonatal [Unknown]
  - Speech disorder developmental [Unknown]
  - Foetal exposure during pregnancy [Unknown]
